FAERS Safety Report 22741056 (Version 6)
Quarter: 2025Q1

REPORT INFORMATION
  Report Type: Spontaneous
  Country: US (occurrence: US)
  Receive Date: 20230724
  Receipt Date: 20250107
  Transmission Date: 20250409
  Serious: Yes (Other)
  Sender: BRISTOL-MYERS SQUIBB COMPANY
  Company Number: US-BRISTOL-MYERS SQUIBB COMPANY-2023-103251

PATIENT
  Age: 59 Year
  Sex: Female

DRUGS (3)
  1. REVLIMID [Suspect]
     Active Substance: LENALIDOMIDE
     Indication: Hypertrophic cardiomyopathy
     Dosage: QD FOR 21 DAYS, THEN 7 DAYS OFF, CYCLIC
     Route: 048
  2. REVLIMID [Suspect]
     Active Substance: LENALIDOMIDE
     Indication: Plasma cell myeloma
     Route: 048
  3. REVLIMID [Suspect]
     Active Substance: LENALIDOMIDE
     Indication: Plasma cell myeloma in remission

REACTIONS (5)
  - Atrial fibrillation [Recovered/Resolved]
  - Product dose omission issue [Unknown]
  - Diarrhoea [Unknown]
  - Memory impairment [Unknown]
  - Bone pain [Unknown]

NARRATIVE: CASE EVENT DATE: 20241104
